FAERS Safety Report 20909668 (Version 2)
Quarter: 2022Q3

REPORT INFORMATION
  Report Type: Report from Study
  Country: CN (occurrence: None)
  Receive Date: 20220603
  Receipt Date: 20220716
  Transmission Date: 20221026
  Serious: Yes (Hospitalization)
  Sender: FDA-Public Use
  Company Number: CN-ROCHE-3106294

PATIENT
  Age: 74 Year
  Sex: Male
  Weight: 58 kg

DRUGS (28)
  1. TIRAGOLUMAB [Suspect]
     Active Substance: TIRAGOLUMAB
     Indication: Small cell lung cancer extensive stage
     Dosage: START DATE OF MOST RECENT DOSE (1200 MG) OF STUDY DRUG PRIOR TO AE 07-MAY-2022
     Route: 042
     Dates: start: 20210608
  2. ATEZOLIZUMAB [Suspect]
     Active Substance: ATEZOLIZUMAB
     Indication: Small cell lung cancer extensive stage
     Dosage: DOSE LAST STUDY DRUG ADMIN PRIOR AE IS 1200 MG?START DATE OF MOST RECENT DOSE OF STUDY DRUG PRIOR TO
     Route: 041
     Dates: start: 20210608
  3. CARBOPLATIN [Suspect]
     Active Substance: CARBOPLATIN
     Indication: Small cell lung cancer extensive stage
     Dosage: DOSE LAST STUDY DRUG ADMIN PRIOR AE 421 MG?START DATE OF MOST RECENT DOSE OF STUDY DRUG PRIOR TO AE
     Route: 042
     Dates: start: 20210608
  4. ETOPOSIDE [Suspect]
     Active Substance: ETOPOSIDE
     Indication: Small cell lung cancer extensive stage
     Dosage: DOSE LAST STUDY DRUG ADMIN PRIOR AE 160 MG?START DATE OF MOST RECENT DOSE OF STUDY DRUG PRIOR TO AE
     Route: 042
     Dates: start: 20210608
  5. CODEINE PHOSPHATE AND PLATYCODON TABLETS [Concomitant]
     Indication: Cough
     Dosage: DOSE: 2 TABLET
     Route: 048
     Dates: start: 20211015, end: 20220420
  6. CODEINE PHOSPHATE AND PLATYCODON TABLETS [Concomitant]
     Dates: start: 20220506
  7. POTASSIUM CHLORIDE [Concomitant]
     Active Substance: POTASSIUM CHLORIDE
     Dates: start: 20220422, end: 20220427
  8. POTASSIUM CHLORIDE [Concomitant]
     Active Substance: POTASSIUM CHLORIDE
     Dates: start: 20220704, end: 20220705
  9. LEVOFLOXACIN HYDROCHLORIDE [Concomitant]
     Active Substance: LEVOFLOXACIN HYDROCHLORIDE
     Dates: start: 20220422, end: 20220427
  10. DYPHYLLINE [Concomitant]
     Active Substance: DYPHYLLINE
     Dates: start: 20220422, end: 20220427
  11. HYDROXYETHYL STARCH 40 SODIUM CHLORIDE [Concomitant]
     Dates: start: 20220422, end: 20220422
  12. VITAMIN C [Concomitant]
     Active Substance: ASCORBIC ACID
     Dates: start: 20220422, end: 20220426
  13. VITAMIN B6 [Concomitant]
     Active Substance: PYRIDOXINE HYDROCHLORIDE
     Dates: start: 20220422, end: 20220426
  14. VITAMIN B6 [Concomitant]
     Active Substance: PYRIDOXINE HYDROCHLORIDE
     Route: 042
     Dates: start: 20220512, end: 20220515
  15. MONTMORILLONITE [Concomitant]
     Active Substance: MONTMORILLONITE
     Indication: Diarrhoea
     Dates: start: 20220422, end: 20220425
  16. MONTMORILLONITE [Concomitant]
     Active Substance: MONTMORILLONITE
     Route: 048
     Dates: start: 20220706, end: 20220708
  17. IPRATROPIUM BROMIDE [Concomitant]
     Active Substance: IPRATROPIUM BROMIDE
  18. TRIAMCINOLONE ACETONIDE AND ECONAZOLE NITRATE [Concomitant]
     Indication: Pruritus
     Dosage: OTHER
     Route: 061
     Dates: start: 20220406, end: 20220503
  19. TRIAMCINOLONE ACETONIDE AND ECONAZOLE NITRATE [Concomitant]
     Dates: start: 20220526
  20. MEGESTROL ACETATE [Concomitant]
     Active Substance: MEGESTROL ACETATE
     Dosage: 1 TABLET
     Route: 048
     Dates: start: 20220515, end: 20220516
  21. MEGESTROL ACETATE [Concomitant]
     Active Substance: MEGESTROL ACETATE
     Route: 048
     Dates: start: 20220616
  22. OMEPRAZOLE [Concomitant]
     Active Substance: OMEPRAZOLE
     Route: 042
     Dates: start: 20220512, end: 20220515
  23. COMPOUND AZINTAMIDE [Concomitant]
     Dosage: 3 TABLET
     Route: 048
     Dates: start: 20220512, end: 20220516
  24. ALANYL GLUTAMINE [Concomitant]
     Active Substance: ALANYL GLUTAMINE
     Route: 042
     Dates: start: 20220512, end: 20220515
  25. OLOPATADINE HYDROCHLORIDE [Concomitant]
     Active Substance: OLOPATADINE HYDROCHLORIDE
     Dates: start: 20220526
  26. PIPERACILLIN SODIUM\SULBACTAM SODIUM [Concomitant]
     Active Substance: PIPERACILLIN SODIUM\SULBACTAM SODIUM
     Route: 042
     Dates: start: 20220704, end: 20220708
  27. BACILLUS LICHENIFORMIS CAPSULE,LIVE [Concomitant]
     Route: 048
     Dates: start: 20220706, end: 20220710
  28. HONEYSUCKLE [Concomitant]
     Route: 048
     Dates: start: 20220706, end: 20220706

REACTIONS (1)
  - Gastritis [Not Recovered/Not Resolved]

NARRATIVE: CASE EVENT DATE: 20220512
